FAERS Safety Report 6121177-6 (Version None)
Quarter: 2009Q1

REPORT INFORMATION
  Report Type: 
  Country: None (occurrence: None)
  Receive Date: 20090312
  Receipt Date: 20090312
  Transmission Date: 20090719
  Serious: Yes (Other)
  Sender: FDA-Public Use
  Company Number: None

PATIENT
  Age: 80 Year
  Sex: Male
  Weight: 68.0396 kg

DRUGS (1)
  1. UROXATRAL [Suspect]
     Dosage: ONE PILL DAILY PO
     Route: 048
     Dates: start: 20000720, end: 20000720

REACTIONS (2)
  - SYNCOPE [None]
  - TINNITUS [None]
